FAERS Safety Report 24893553 (Version 1)
Quarter: 2025Q1

REPORT INFORMATION
  Report Type: Spontaneous
  Country: US (occurrence: US)
  Receive Date: 20250128
  Receipt Date: 20250128
  Transmission Date: 20250409
  Serious: No
  Sender: LEO PHARM
  Company Number: US-LEO Pharma-375079

PATIENT
  Age: 29 Year
  Sex: Male
  Weight: 79 kg

DRUGS (1)
  1. ADBRY [Suspect]
     Active Substance: TRALOKINUMAB-LDRM
     Indication: Dermatitis atopic
     Dosage: INJECT 300MG (2 SYRINGES) SUBCUTANEOUSLY EVERY 2 WEEKS STARTING ON DAY 15 AS DIRECTED
     Route: 058
     Dates: start: 202410

REACTIONS (1)
  - Conjunctivitis [Not Recovered/Not Resolved]
